FAERS Safety Report 5459488-X (Version None)
Quarter: 2007Q3

REPORT INFORMATION
  Report Type: 
  Country: None (occurrence: None)
  Receive Date: 20070919
  Receipt Date: 20070914
  Transmission Date: 20080115
  Serious: Yes (Hospitalization)
  Sender: FDA-Public Use
  Company Number: A0682236A

PATIENT
  Sex: Female
  Weight: 55 kg

DRUGS (2)
  1. AEROLIN [Suspect]
     Dosage: 2MG PER DAY
     Route: 048
     Dates: start: 19920101
  2. PREDNISOLONE [Concomitant]
     Dates: start: 19920101

REACTIONS (2)
  - SYNCOPE [None]
  - TACHYCARDIA [None]
